APPROVED DRUG PRODUCT: PARICALCITOL
Active Ingredient: PARICALCITOL
Strength: 0.005MG/ML (0.005MG/ML)
Dosage Form/Route: SOLUTION;INTRAVENOUS
Application: A091108 | Product #002 | TE Code: AP
Applicant: SANDOZ INC
Approved: Jul 27, 2011 | RLD: No | RS: No | Type: RX